FAERS Safety Report 11507844 (Version 1)
Quarter: 2015Q3

REPORT INFORMATION
  Report Type: Spontaneous
  Country: US (occurrence: US)
  Receive Date: 20150903
  Receipt Date: 20150903
  Transmission Date: 20151125
  Serious: No
  Sender: FDA-Public Use
  Company Number: US-ELI_LILLY_AND_COMPANY-US200910002508

PATIENT
  Age: 26 Year
  Sex: Female

DRUGS (3)
  1. NOVOLIN N [Concomitant]
     Active Substance: INSULIN HUMAN
  2. LEVEMIR [Concomitant]
     Active Substance: INSULIN DETEMIR
  3. HUMALOG [Suspect]
     Active Substance: INSULIN LISPRO

REACTIONS (6)
  - Wrong drug administered [Unknown]
  - Blood glucose increased [Unknown]
  - Drug dispensing error [Unknown]
  - Headache [Unknown]
  - Malaise [Unknown]
  - Product preparation error [Unknown]
